FAERS Safety Report 7015765-2 (Version None)
Quarter: 2010Q3

REPORT INFORMATION
  Report Type: 
  Country: None (occurrence: None)
  Receive Date: 20100927
  Receipt Date: 20100129
  Transmission Date: 20110219
  Serious: Yes (Other)
  Sender: FDA-Public Use
  Company Number: US-ASTRAZENECA-2010SE04154

PATIENT
  Age: 53 Year
  Sex: Female
  Weight: 68.9 kg

DRUGS (3)
  1. ARIMIDEX [Suspect]
     Indication: BREAST CANCER
     Route: 048
     Dates: start: 20060501, end: 20100128
  2. CALCIUM SUPPLIMENTS [Concomitant]
  3. VIT D [Concomitant]

REACTIONS (7)
  - ARTHRALGIA [None]
  - CEREBRAL ISCHAEMIA [None]
  - CONFUSIONAL STATE [None]
  - HEAD TITUBATION [None]
  - MUSCLE TWITCHING [None]
  - MYALGIA [None]
  - TRIGGER FINGER [None]
